FAERS Safety Report 9452885 (Version 2)
Quarter: 2013Q3

REPORT INFORMATION
  Report Type: Spontaneous
  Country: US (occurrence: US)
  Receive Date: 20130812
  Receipt Date: 20130828
  Transmission Date: 20140515
  Serious: Yes (Other)
  Sender: FDA-Public Use
  Company Number: US-PFIZER INC-2013229060

PATIENT
  Age: 78 Year
  Sex: Female

DRUGS (1)
  1. REVATIO [Suspect]
     Indication: PULMONARY ARTERIAL HYPERTENSION
     Dosage: 40 MG (2X20MG TABLETS), 3X/DAY
     Dates: start: 20110825

REACTIONS (2)
  - Neoplasm malignant [Unknown]
  - Dyspnoea [Unknown]
